FAERS Safety Report 14272480 (Version 3)
Quarter: 2018Q1

REPORT INFORMATION
  Report Type: Spontaneous
  Country: US (occurrence: US)
  Receive Date: 20171212
  Receipt Date: 20180117
  Transmission Date: 20180508
  Serious: No
  Sender: FDA-Public Use
  Company Number: US-B.I. PHARMACEUTICALS,INC./RIDGEFIELD-2017-BI-065806

PATIENT
  Age: 71 Year
  Sex: Female

DRUGS (2)
  1. SPIRIVA RESPIMAT [Suspect]
     Active Substance: TIOTROPIUM BROMIDE
     Indication: ASTHMA
     Dosage: ONCEDAILYFRMSTRNGTH1.25MCGFRMLATIONINHALATIONSPRAYADMINISTRATIONCORRECTYESACTIONTAKEN:DOSENOTCHANGED
     Route: 055
     Dates: start: 20170928
  2. DULERA [Concomitant]
     Active Substance: FORMOTEROL FUMARATE DIHYDRATE\MOMETASONE FUROATE
     Indication: ASTHMA
     Dosage: TWICE DAILY;  FORM STRENGTH: 200/5MG
     Route: 055

REACTIONS (3)
  - Frustration tolerance decreased [Unknown]
  - Anger [Recovered/Resolved]
  - Product packaging quantity issue [Unknown]

NARRATIVE: CASE EVENT DATE: 20171208
